FAERS Safety Report 9015801 (Version 1)
Quarter: 2013Q1

REPORT INFORMATION
  Report Type: Spontaneous
  Country: ES (occurrence: None)
  Receive Date: 20130103
  Receipt Date: 20130103
  Transmission Date: 20140127
  Serious: Yes (Other)
  Sender: FDA-Public Use
  Company Number: ES-1195890

PATIENT
  Age: 33 Year
  Sex: Male

DRUGS (7)
  1. OFTACILOX 0.3% OPHTHALMIC SOLUTION (OFTACILOX 0.3%) [Suspect]
     Indication: KERATITIS BACTERIAL
     Route: 047
  2. TOBREX [Suspect]
     Indication: KERATITIS BACTERIAL
     Route: 047
  3. VIGAMOX [Suspect]
     Indication: KERATITIS BACTERIAL
     Route: 047
  4. AMIKACIN [Suspect]
     Indication: KERATITIS BACTERIAL
     Route: 047
  5. CLARITHROMYCIN [Suspect]
     Indication: KERATITIS BACTERIAL
     Route: 047
  6. VANCOMYCIN HYDROCHLORIDE [Suspect]
     Route: 047
  7. CLARITHROMYCIN [Suspect]
     Route: 048

REACTIONS (3)
  - Corneal infiltrates [None]
  - Condition aggravated [None]
  - Drug ineffective [None]
